FAERS Safety Report 5851992-5 (Version None)
Quarter: 2008Q3

REPORT INFORMATION
  Report Type: 
  Country: None (occurrence: None)
  Receive Date: 20080819
  Receipt Date: 20080806
  Transmission Date: 20090109
  Serious: Yes (Other)
  Sender: FDA-Public Use
  Company Number: 2008AL009217

PATIENT
  Age: 90 Year
  Sex: Female
  Weight: 53.5244 kg

DRUGS (10)
  1. DIGOXIN [Suspect]
     Indication: CARDIAC DISORDER
     Dosage: 0.125 MG DAILY PO
     Route: 048
     Dates: start: 20010101
  2. LIPITOR [Concomitant]
  3. POTASSIUM CHLORIDE [Concomitant]
  4. SYNTHROID [Concomitant]
  5. UNSPECIFIED IRON PILLS [Concomitant]
  6. ARICEPT [Concomitant]
  7. ASPIRIN [Concomitant]
  8. HYZAAR [Concomitant]
  9. UNSPECIFIED EYE DROPS [Concomitant]
  10. NAMENDA [Concomitant]

REACTIONS (2)
  - ASTHENIA [None]
  - FALL [None]
